FAERS Safety Report 9091765 (Version 2)
Quarter: 2013Q1

REPORT INFORMATION
  Report Type: Spontaneous
  Country: DE (occurrence: NO)
  Receive Date: 20130131
  Receipt Date: 20130306
  Transmission Date: 20140127
  Serious: Yes (Other)
  Sender: FDA-Public Use
  Company Number: 2013SP000249

PATIENT
  Age: 55 Year
  Sex: Female
  Weight: 66 kg

DRUGS (3)
  1. ALVESCO [Suspect]
     Indication: COUGH
     Route: 055
     Dates: start: 20120511, end: 201205
  2. ALVESCO [Suspect]
     Indication: HYPERSENSITIVITY
     Route: 055
     Dates: start: 20120511, end: 201205
  3. TERBUTALINE [Concomitant]
     Indication: COUGH

REACTIONS (3)
  - Anxiety [Recovered/Resolved]
  - Palpitations [Recovered/Resolved]
  - Oropharyngeal pain [Recovered/Resolved]
